FAERS Safety Report 19440220 (Version 3)
Quarter: 2021Q3

REPORT INFORMATION
  Report Type: Report from Study
  Country: AT (occurrence: AT)
  Receive Date: 20210621
  Receipt Date: 20210810
  Transmission Date: 20211014
  Serious: Yes (Hospitalization)
  Sender: FDA-Public Use
  Company Number: AT-CELLTRION INC.-2021AT008201

PATIENT

DRUGS (30)
  1. DENOSUMAB [Suspect]
     Active Substance: DENOSUMAB
     Indication: BREAST CANCER
     Dosage: 120 MG (FREQUENCY: MONTHLY MOST RECENT DOSE PRIOR TO THE EVENT ON 19MAR2019)
     Route: 058
     Dates: start: 201611, end: 20181129
  2. PARACETAMOL [Concomitant]
     Active Substance: ACETAMINOPHEN
     Indication: VOMITING
     Dosage: ONGOING = NOT CHECKED
     Dates: start: 20200228, end: 20200228
  3. LYRICA [Concomitant]
     Active Substance: PREGABALIN
     Indication: GENERAL PHYSICAL HEALTH DETERIORATION
     Dosage: ONGOING = NOT CHECKED
     Dates: start: 20200225, end: 20200417
  4. TRASTUZUMAB EMTANSINE [Suspect]
     Active Substance: ADO-TRASTUZUMAB EMTANSINE
     Indication: BREAST CANCER
     Dosage: 3.6 MG/KG (FREQUENCY: Q4W ? EVERY 4 WEEKS MOST RECENT DOSE PRIOR TO THE EVENT ON 21AUG2017)
     Route: 042
     Dates: start: 20161114, end: 20170522
  5. LETROZOLE. [Suspect]
     Active Substance: LETROZOLE
     Indication: BREAST CANCER
     Dosage: 2.5 MG, DAILY
     Route: 048
     Dates: start: 20180426
  6. ZOFRAN [Concomitant]
     Active Substance: ONDANSETRON HYDROCHLORIDE
     Indication: NAUSEA
     Dosage: ONGOING = NOT CHECKED
     Dates: start: 20200228, end: 20200228
  7. MOLAXOLE [Concomitant]
     Active Substance: POLYETHYLENE GLYCOL 3350\POTASSIUM CHLORIDE\SODIUM BICARBONATE\SODIUM CHLORIDE
     Indication: NAUSEA
     Dosage: ONGOING = NOT CHECKED
     Dates: start: 20200306, end: 20200311
  8. TRASTUZUMAB (UNKNOWN) [Suspect]
     Active Substance: TRASTUZUMAB
     Indication: BREAST CANCER
     Dosage: 600 MG (Q3W ? EVERY 3 WEEKS)
     Route: 042
     Dates: start: 20180503
  9. PERTUZUMAB. [Suspect]
     Active Substance: PERTUZUMAB
     Indication: BREAST CANCER
     Dosage: 420 MG (FREQUENCY: Q3W ? EVERY 3 WEEKS MOST RECENT DOSE PRIOR TO THE EVENT ON 22/NOV/2018)
     Route: 042
     Dates: start: 201811
  10. ZOFRAN [Concomitant]
     Active Substance: ONDANSETRON HYDROCHLORIDE
     Indication: VOMITING
  11. MIRANAX [Concomitant]
     Dosage: ONGOING = NOT CHECKED
     Dates: start: 20161115, end: 20200417
  12. VENDAL [Concomitant]
     Active Substance: MORPHINE
     Indication: GENERAL PHYSICAL HEALTH DETERIORATION
     Dosage: ONGOING = NOT CHECKED
     Dates: start: 20200225, end: 20200417
  13. FORTECORTIN [Concomitant]
     Active Substance: DEXAMETHASONE
     Indication: NAUSEA
     Dosage: ONGOING = NOT CHECKED
     Dates: start: 20200229, end: 20200302
  14. PARACETAMOL [Concomitant]
     Active Substance: ACETAMINOPHEN
     Indication: NAUSEA
     Dosage: UNK
     Dates: start: 20200228, end: 20200228
  15. MEXALEN [Concomitant]
     Active Substance: ACETAMINOPHEN
     Indication: METASTASES TO CENTRAL NERVOUS SYSTEM
     Dosage: ONGOING = NOT CHECKED
     Dates: start: 20170609, end: 20200417
  16. FORTECORTIN [Concomitant]
     Active Substance: DEXAMETHASONE
     Indication: VOMITING
     Dosage: ONGOING = NOT CHECKED
     Dates: start: 20170330, end: 20200417
  17. ZOLPIDEM [Concomitant]
     Active Substance: ZOLPIDEM TARTRATE
     Indication: VOMITING
     Dosage: ONGOING = NOT CHECKED
     Dates: start: 20200228, end: 20200417
  18. ZOFRAN [Concomitant]
     Active Substance: ONDANSETRON HYDROCHLORIDE
     Indication: PRODUCT USED FOR UNKNOWN INDICATION
     Dosage: ONGOING = NOT CHECKED
     Dates: start: 20161115, end: 20200417
  19. PARKEMED [Concomitant]
     Active Substance: MEFENAMIC ACID
     Indication: PRODUCT USED FOR UNKNOWN INDICATION
     Dosage: ONGOING = NOT CHECKED
     Dates: start: 20170315, end: 20200417
  20. PERTUZUMAB. [Suspect]
     Active Substance: PERTUZUMAB
     Dosage: 840 MG, EVERY 3 WEEKS
     Route: 042
     Dates: start: 20181122, end: 20181122
  21. LAFENE [Concomitant]
     Indication: GENERAL PHYSICAL HEALTH DETERIORATION
     Dosage: ONGOING = NOT CHECKED
     Dates: start: 20190421, end: 20200224
  22. MOLAXOLE [Concomitant]
     Active Substance: POLYETHYLENE GLYCOL 3350\POTASSIUM CHLORIDE\SODIUM BICARBONATE\SODIUM CHLORIDE
     Indication: VOMITING
  23. NOVALGIN (AUSTRIA) [Concomitant]
     Dosage: ONGOING = NOT CHECKED
     Dates: start: 20181117, end: 20200417
  24. ZOLPIDEM [Concomitant]
     Active Substance: ZOLPIDEM TARTRATE
     Indication: NAUSEA
  25. EMEND [Concomitant]
     Active Substance: APREPITANT
     Dosage: ONGOING = NOT CHECKED
     Dates: start: 20161115, end: 20200417
  26. FORTECORTIN [Concomitant]
     Active Substance: DEXAMETHASONE
     Dosage: UNK
     Dates: start: 20200229, end: 20200302
  27. LEUPRORELIN ACETATE [Suspect]
     Active Substance: LEUPROLIDE ACETATE
     Indication: BREAST CANCER
     Dosage: 11.25 MG EVERY 3 MONTHS
     Route: 058
     Dates: start: 201804
  28. LAFENE [Concomitant]
     Indication: SPINAL PAIN
     Dosage: ONGOING = NOT CHECKED
     Dates: start: 20200225, end: 20200417
  29. FRAGMIN [Concomitant]
     Active Substance: DALTEPARIN SODIUM
     Dosage: ONGOING = NOT CHECKED
     Dates: start: 20200228, end: 20200311
  30. FORTECORTIN [Concomitant]
     Active Substance: DEXAMETHASONE
     Dosage: ONGOING = NOT CHECKED
     Dates: start: 20200303, end: 20200309

REACTIONS (2)
  - Post herpetic neuralgia [Not Recovered/Not Resolved]
  - Overdose [Unknown]

NARRATIVE: CASE EVENT DATE: 20200225
